FAERS Safety Report 5649523-8 (Version None)
Quarter: 2008Q1

REPORT INFORMATION
  Report Type: 
  Country: None (occurrence: None)
  Receive Date: 20080131
  Receipt Date: 20071226
  Transmission Date: 20080703
  Serious: No
  Sender: FDA-Public Use
  Company Number: US200705002068

PATIENT
  Age: 67 Year
  Sex: Female
  Weight: 123.4 kg

DRUGS (8)
  1. BYETTA [Suspect]
     Indication: TYPE 2 DIABETES MELLITUS
     Dosage: 5 UG, SUBCUTANEOUS
     Route: 058
     Dates: start: 20061201, end: 20060101
  2. BYETTA [Suspect]
     Dosage: 10 UG, 2/D, SUBCUTANEOUS
     Route: 058
     Dates: start: 20060101
  3. BYETTA [Suspect]
     Dosage: 10 UG, 2/D, SUBCUTANEOUS
     Route: 058
     Dates: start: 20060101
  4. METFORMIN HCL [Concomitant]
  5. ACTOS [Concomitant]
  6. DITROPAN XL [Concomitant]
  7. LOTREL [Concomitant]
  8. VYTORIN [Concomitant]

REACTIONS (6)
  - DRY MOUTH [None]
  - DYSGEUSIA [None]
  - FATIGUE [None]
  - INJECTION SITE PAIN [None]
  - NAUSEA [None]
  - PARAESTHESIA ORAL [None]
